FAERS Safety Report 19780115 (Version 1)
Quarter: 2021Q3

REPORT INFORMATION
  Report Type: Spontaneous
  Country: IR (occurrence: IR)
  Receive Date: 20210902
  Receipt Date: 20210902
  Transmission Date: 20211014
  Serious: Yes (Other)
  Sender: FDA-Public Use
  Company Number: IR-ROCHE-2900946

PATIENT
  Sex: Male

DRUGS (2)
  1. ACTILYSE [Suspect]
     Active Substance: ALTEPLASE
     Indication: COVID-19
  2. ACTILYSE [Suspect]
     Active Substance: ALTEPLASE
     Indication: ACUTE RESPIRATORY DISTRESS SYNDROME
     Route: 065

REACTIONS (2)
  - Drug ineffective [Unknown]
  - Off label use [Unknown]
